FAERS Safety Report 7672184-3 (Version None)
Quarter: 2011Q3

REPORT INFORMATION
  Report Type: 
  Country: None (occurrence: None)
  Receive Date: 20110809
  Receipt Date: 20110804
  Transmission Date: 20111222
  Serious: Yes (Death)
  Sender: FDA-Public Use
  Company Number: PHHO2011US12607

PATIENT
  Sex: Male

DRUGS (6)
  1. TRICOR [Concomitant]
     Dosage: 145 MG, UNK
     Dates: start: 20110607
  2. AFINITOR [Suspect]
     Indication: NEOPLASM
     Dosage: 5 MG, UNK
     Route: 048
     Dates: start: 20110425, end: 20110627
  3. OXALIPLATIN [Suspect]
     Indication: NEOPLASM
     Dosage: 220 MG, QW3
     Route: 042
     Dates: start: 20110425, end: 20110606
  4. CAPECITABINE [Suspect]
     Indication: NEOPLASM
     Dosage: 1500 MG, BID
     Route: 048
     Dates: start: 20110425, end: 20110626
  5. AVASTIN [Suspect]
     Indication: NEOPLASM
     Dosage: 900 MG, QW3
     Route: 042
     Dates: start: 20110425, end: 20110606
  6. DIOVAN HCT [Concomitant]
     Dosage: 160/12.5 MG
     Dates: start: 20110516

REACTIONS (3)
  - GASTROINTESTINAL PERFORATION [None]
  - NEOPLASM PROGRESSION [None]
  - NEOPLASM MALIGNANT [None]
